FAERS Safety Report 5264886-3 (Version None)
Quarter: 2007Q1

REPORT INFORMATION
  Report Type: 
  Country: None (occurrence: None)
  Receive Date: 20061117
  Receipt Date: 20060815
  Transmission Date: 20070707
  Serious: Yes (Hospitalization, Other)
  Sender: FDA-Public Use
  Company Number: US-JNJFOC-20060800387

PATIENT
  Age: 53 Year
  Sex: Male
  Weight: 80.2867 kg

DRUGS (6)
  1. LEVAQUIN [Suspect]
     Indication: SINUSITIS
     Dosage: 750 MG, 1 IN 1 D, ORAL
     Route: 048
     Dates: start: 20060630, end: 20060725
  2. AZITHROMYCIN [Concomitant]
  3. AUGMENTIN '125' [Concomitant]
  4. CEFTIN [Concomitant]
  5. BIAXIN [Concomitant]
  6. PREDNISONE TAB [Concomitant]

REACTIONS (3)
  - ARTHRALGIA [None]
  - ARTHRITIS [None]
  - MYALGIA [None]
